FAERS Safety Report 10622777 (Version 1)
Quarter: 2014Q4

REPORT INFORMATION
  Report Type: Spontaneous
  Country: US (occurrence: None)
  Receive Date: 20141202
  Receipt Date: 20141202
  Transmission Date: 20150529
  Serious: Yes (Other)
  Sender: FDA-Public Use
  Company Number: None

PATIENT
  Age: 37 Year
  Sex: Male
  Weight: 77.57 kg

DRUGS (1)
  1. OVACE PLUS [Suspect]
     Active Substance: SULFACETAMIDE SODIUM
     Indication: SEBORRHOEIC DERMATITIS
     Dosage: APPLY TO FACE; APPLIED TO A SURFACE, USUALLY THE SKIN
     Route: 061

REACTIONS (5)
  - Economic problem [None]
  - Product quality issue [None]
  - Product substitution issue [None]
  - Condition aggravated [None]
  - Drug ineffective [None]

NARRATIVE: CASE EVENT DATE: 20141130
